FAERS Safety Report 14813885 (Version 1)
Quarter: 2018Q2

REPORT INFORMATION
  Report Type: Spontaneous
  Country: FR (occurrence: FR)
  Receive Date: 20180426
  Receipt Date: 20180426
  Transmission Date: 20180711
  Serious: Yes (Other)
  Sender: FDA-Public Use
  Company Number: FR-MERCK KGAA-2046574

PATIENT
  Age: 73 Year
  Sex: Female

DRUGS (1)
  1. NOVOTHYROX [Suspect]
     Active Substance: LEVOTHYROXINE SODIUM
     Indication: PRODUCT USED FOR UNKNOWN INDICATION

REACTIONS (17)
  - Hypokinesia [None]
  - Dysstasia [None]
  - Multiple sclerosis [None]
  - Loss of personal independence in daily activities [None]
  - Social avoidant behaviour [None]
  - Disturbance in attention [None]
  - Malaise [None]
  - Gait disturbance [None]
  - Apathy [None]
  - Mobility decreased [None]
  - Balance disorder [None]
  - Pain in extremity [None]
  - Irregular sleep phase [None]
  - Blood thyroid stimulating hormone decreased [None]
  - General physical health deterioration [None]
  - Fatigue [None]
  - Psychiatric symptom [None]

NARRATIVE: CASE EVENT DATE: 201708
